FAERS Safety Report 10185922 (Version 1)
Quarter: 2014Q2

REPORT INFORMATION
  Report Type: Spontaneous
  Country: CA (occurrence: CA)
  Receive Date: 20140521
  Receipt Date: 20140521
  Transmission Date: 20141212
  Serious: Yes (Hospitalization)
  Sender: FDA-Public Use
  Company Number: CA-CELGENEUS-028-20785-14052887

PATIENT
  Age: 77 Year
  Sex: Male

DRUGS (1)
  1. THALOMID [Suspect]
     Indication: PLASMA CELL MYELOMA
     Dosage: 100 MILLIGRAM
     Route: 048
     Dates: start: 201404, end: 2014

REACTIONS (2)
  - Cardiac disorder [Not Recovered/Not Resolved]
  - Lung disorder [Not Recovered/Not Resolved]
